FAERS Safety Report 23024673 (Version 3)
Quarter: 2023Q4

REPORT INFORMATION
  Report Type: Report from Study
  Country: US (occurrence: US)
  Receive Date: 20231004
  Receipt Date: 20231010
  Transmission Date: 20240110
  Serious: No
  Sender: FDA-Public Use
  Company Number: US-ABBVIE-5433392

PATIENT
  Age: 66 Year
  Sex: Male
  Weight: 107 kg

DRUGS (3)
  1. LINZESS [Suspect]
     Active Substance: LINACLOTIDE
     Indication: Irritable bowel syndrome
     Dosage: FORM STRENGTH: 145 MICROGRAM
     Route: 048
     Dates: start: 20231001, end: 20231002
  2. PAXIL [Concomitant]
     Active Substance: PAROXETINE HYDROCHLORIDE
     Indication: Panic reaction
     Dosage: 40 MILLIGRAM
  3. PROPRANOLOL [Concomitant]
     Active Substance: PROPRANOLOL HYDROCHLORIDE
     Indication: Tremor
     Dosage: TIME INTERVAL: 0.33333333 DAYS: 10 MILLIGRAM

REACTIONS (5)
  - Abdominal pain [Recovered/Resolved]
  - Fatigue [Unknown]
  - Abdominal distension [Recovered/Resolved]
  - Discomfort [Unknown]
  - Drug ineffective [Unknown]

NARRATIVE: CASE EVENT DATE: 20231001
